FAERS Safety Report 23370368 (Version 1)
Quarter: 2024Q1

REPORT INFORMATION
  Report Type: Spontaneous
  Country: US (occurrence: None)
  Receive Date: 20240105
  Receipt Date: 20240105
  Transmission Date: 20240410
  Serious: Yes (Death)
  Sender: FDA-Public Use
  Company Number: None

PATIENT
  Age: 64 Year
  Sex: Male
  Weight: 119.7 kg

DRUGS (13)
  1. LENALIDOMIDE [Suspect]
     Active Substance: LENALIDOMIDE
     Indication: Plasma cell myeloma
     Dosage: FREQUENCY : DAILY;?
     Route: 048
     Dates: start: 20231206
  2. aspirin 81 mg tablet,delayed release [Concomitant]
  3. Compazine 10 mg tablet [Concomitant]
  4. DEXAMETHASONE [Concomitant]
     Active Substance: DEXAMETHASONE
  5. hydrocodone 10 mg-acetaminophen 325 mg tablet [Concomitant]
  6. Miralax 17 gram oral powder packet [Concomitant]
  7. MONTELUKAST SODIUM [Concomitant]
     Active Substance: MONTELUKAST SODIUM
  8. ondansetron 8 mg disintegrating tablet [Concomitant]
  9. Prilosec OTC 20 mg tablet,delayed releas [Concomitant]
  10. ZYRTEC [Concomitant]
     Active Substance: CETIRIZINE HYDROCHLORIDE
  11. Zometa (Zoledronic acid) 4mg IV q 28d x 12 Cycles v3.0 [Concomitant]
  12. RVD: PO Revlimid (lenalidomide) 25mg d1-14; Bortezomib **SUBQ** 1.3mg/ [Concomitant]
  13. Vitamin B-12 (cyanocobalamin) 1000mcg q wk x4, then q month x 12 v2.0 [Concomitant]

REACTIONS (1)
  - Death [None]

NARRATIVE: CASE EVENT DATE: 20231229
